FAERS Safety Report 24765432 (Version 1)
Quarter: 2024Q4

REPORT INFORMATION
  Report Type: Spontaneous
  Country: US (occurrence: None)
  Receive Date: 20241220
  Receipt Date: 20241220
  Transmission Date: 20250115
  Serious: Yes (Hospitalization)
  Sender: Public
  Company Number: None

PATIENT
  Age: 65 Year
  Sex: Male

DRUGS (2)
  1. ALTUVIIIO [Suspect]
     Active Substance: EFANESOCTOCOG ALFA
     Indication: Factor VIII deficiency
     Dosage: 3000 UNITS EVERY WEEK SLOW IV PUSH?
     Route: 042
     Dates: start: 202409
  2. ALTUVIIIO [Suspect]
     Active Substance: EFANESOCTOCOG ALFA
     Indication: Factor VIII deficiency
     Dosage: 3000 UNITS EVERY WEEK SLOW IV PUSH?
     Route: 058
     Dates: start: 20240905

REACTIONS (2)
  - Ulcer haemorrhage [None]
  - Gingival bleeding [None]

NARRATIVE: CASE EVENT DATE: 20241208
